FAERS Safety Report 8110998-6 (Version None)
Quarter: 2012Q1

REPORT INFORMATION
  Report Type: 
  Country: None (occurrence: None)
  Receive Date: 20120203
  Receipt Date: 20110204
  Transmission Date: 20120608
  Serious: No
  Sender: FDA-Public Use
  Company Number: US-GLAXOSMITHKLINE-A0911985A

PATIENT
  Age: 59 Year
  Sex: Female

DRUGS (6)
  1. LAMICTAL [Suspect]
     Indication: MOOD SWINGS
     Route: 048
     Dates: start: 20050101
  2. PAXIL [Concomitant]
  3. LAMOTRIGINE [Suspect]
     Indication: MOOD SWINGS
     Dosage: 150MG PER DAY
     Route: 048
  4. LEVOTHYROXINE SODIUM [Concomitant]
  5. METOPROLOL [Concomitant]
  6. MIRAPEX [Concomitant]

REACTIONS (1)
  - RASH [None]
